FAERS Safety Report 4452368-8 (Version None)
Quarter: 2004Q3

REPORT INFORMATION
  Report Type: 
  Country: None (occurrence: None)
  Receive Date: 20040917
  Receipt Date: 20040907
  Transmission Date: 20050211
  Serious: Yes (Other)
  Sender: FDA-Public Use
  Company Number: PHEH2004US09606

PATIENT
  Age: 63 Year
  Sex: Male

DRUGS (2)
  1. ZOMETA [Suspect]
     Indication: MULTIPLE MYELOMA
     Dosage: 4 MG, MONTHLY
     Dates: start: 20010101
  2. LEVAQUIN [Concomitant]
     Dosage: 500 MG, QD
     Dates: start: 20040624, end: 20040711

REACTIONS (9)
  - DIABETES MELLITUS [None]
  - EXOSTOSIS [None]
  - HEPATITIS B [None]
  - JAW DISORDER [None]
  - JAW INFLAMMATION [None]
  - ORAL INFECTION [None]
  - PAIN [None]
  - STEM CELL TRANSPLANT [None]
  - STOMACH DISCOMFORT [None]
